FAERS Safety Report 4295310-5 (Version None)
Quarter: 2004Q1

REPORT INFORMATION
  Report Type: 
  Country: None (occurrence: None)
  Receive Date: 20040216
  Receipt Date: 20030529
  Transmission Date: 20041129
  Serious: No
  Sender: FDA-Public Use
  Company Number: US-GLAXOSMITHKLINE-A0410560A

PATIENT
  Age: 21 Year
  Sex: Female
  Weight: 91.8 kg

DRUGS (15)
  1. LAMICTAL [Suspect]
     Dosage: 200MG TWICE PER DAY
     Route: 048
     Dates: start: 20030402, end: 20030529
  2. RISPERDAL [Concomitant]
     Dosage: 5MG PER DAY
     Route: 048
     Dates: start: 20030512
  3. KLONOPIN [Concomitant]
     Indication: AGITATION
     Dosage: 1MG THREE TIMES PER DAY
     Route: 048
     Dates: start: 20030512
  4. ORTHO EVRA [Concomitant]
     Route: 023
  5. BENADRYL [Concomitant]
     Indication: AGITATION
     Dosage: 50MG TWICE PER DAY
     Route: 048
     Dates: start: 20030512
  6. AMBIEN [Concomitant]
     Indication: INSOMNIA
     Dosage: 10MG AT NIGHT
     Route: 048
     Dates: start: 20030416
  7. PRILOSEC [Concomitant]
     Dosage: 40MG IN THE MORNING
     Route: 048
     Dates: start: 20030430
  8. VENTOLIN [Concomitant]
     Route: 055
  9. TYLENOL (CAPLET) [Concomitant]
  10. ATIVAN [Concomitant]
  11. HALDOL [Concomitant]
  12. TUMS [Concomitant]
  13. NICORETTE [Concomitant]
     Route: 048
  14. CAFFEINE [Concomitant]
  15. EPHEDRA [Concomitant]

REACTIONS (5)
  - DERMATITIS [None]
  - PRURITUS [None]
  - RASH [None]
  - RASH MACULO-PAPULAR [None]
  - URTICARIA [None]
